FAERS Safety Report 7582995-0 (Version None)
Quarter: 2011Q2

REPORT INFORMATION
  Report Type: 
  Country: None (occurrence: None)
  Receive Date: 20110527
  Receipt Date: 20110518
  Transmission Date: 20111010
  Serious: Yes (Hospitalization, Other)
  Sender: FDA-Public Use
  Company Number: US201005000640

PATIENT
  Sex: Male

DRUGS (13)
  1. SIMVASTATIN [Concomitant]
  2. LISINOPRIL [Concomitant]
  3. EXENATIDE UNK STRENGTH PEN, DISPOSABLE DEVICE (EXENATIDE PEN (UNKNOWN [Concomitant]
  4. ACTOS [Concomitant]
  5. BYETTA [Suspect]
     Dates: start: 20060105, end: 20080513
  6. AMOXICILLIN [Concomitant]
  7. AMPICILLIN [Concomitant]
  8. GENTAMICIN [Concomitant]
  9. LANTUS [Concomitant]
  10. JANUVIA [Concomitant]
  11. FELODIPINE [Concomitant]
  12. METOPROLOL (METOPROLOL) A [Concomitant]
  13. CETAMINOPHEN (PARACETAMOL) [Concomitant]

REACTIONS (4)
  - RENAL FAILURE ACUTE [None]
  - RENAL IMPAIRMENT [None]
  - PANCREATITIS [None]
  - OFF LABEL USE [None]
